FAERS Safety Report 5100678-3 (Version None)
Quarter: 2006Q3

REPORT INFORMATION
  Report Type: 
  Country: None (occurrence: None)
  Receive Date: 20060906
  Receipt Date: 20060822
  Transmission Date: 20061208
  Serious: Yes (Hospitalization)
  Sender: FDA-Public Use
  Company Number: 0206027

PATIENT
  Age: 78 Year
  Sex: Female
  Weight: 86.1834 kg

DRUGS (2)
  1. DEPODUR [Suspect]
     Indication: PROCEDURAL PAIN
     Dosage: 10 MG (ONCE), EPIDURAL
     Route: 008
     Dates: start: 20060724, end: 20060724
  2. BUPIVACAINE [Concomitant]

REACTIONS (7)
  - ANOXIC ENCEPHALOPATHY [None]
  - BLOOD GASES ABNORMAL [None]
  - BLOOD PRESSURE DECREASED [None]
  - PCO2 INCREASED [None]
  - PO2 INCREASED [None]
  - RESPIRATORY DEPRESSION [None]
  - SLEEP APNOEA SYNDROME [None]
